FAERS Safety Report 13658887 (Version 1)
Quarter: 2017Q2

REPORT INFORMATION
  Report Type: Spontaneous
  Country: GB (occurrence: GB)
  Receive Date: 20170616
  Receipt Date: 20170616
  Transmission Date: 20170830
  Serious: Yes (Hospitalization, Disabling, Other)
  Sender: FDA-Public Use
  Company Number: GB-ACCORD-052599

PATIENT
  Age: 64 Year
  Sex: Female
  Weight: 78 kg

DRUGS (9)
  1. BETAHISTINE [Concomitant]
     Active Substance: BETAHISTINE
  2. ALUMINIUM HYDROXIDE/MAGNESIUM HYDROXIDE [Concomitant]
  3. AMLODIPINE [Suspect]
     Active Substance: AMLODIPINE BESYLATE
     Indication: HYPERTENSION
     Route: 048
     Dates: start: 20081001, end: 20170503
  4. LISINOPRIL. [Concomitant]
     Active Substance: LISINOPRIL
  5. CALCIUM CARBONATE/CALCIUM LACTOGLUCONATE [Concomitant]
  6. ESTROGENS CONJUGATED [Concomitant]
     Active Substance: ESTROGENS, CONJUGATED
  7. ERGOCALCIFEROL. [Concomitant]
     Active Substance: ERGOCALCIFEROL
  8. CURCUMA LONGA [Concomitant]
     Active Substance: HERBALS\TURMERIC
  9. ASCORBIC ACID. [Concomitant]
     Active Substance: ASCORBIC ACID

REACTIONS (2)
  - Joint swelling [Recovering/Resolving]
  - Muscle swelling [Recovering/Resolving]

NARRATIVE: CASE EVENT DATE: 20170301
